FAERS Safety Report 6586325-2 (Version None)
Quarter: 2010Q1

REPORT INFORMATION
  Report Type: 
  Country: None (occurrence: None)
  Receive Date: 20100217
  Receipt Date: 20100215
  Transmission Date: 20100710
  Serious: Yes (Life-Threatening, Hospitalization)
  Sender: FDA-Public Use
  Company Number: GB-MERCK-1002GBR00061

PATIENT
  Sex: Female

DRUGS (7)
  1. FOSAMAX [Suspect]
     Indication: OSTEOPOROSIS
     Route: 048
     Dates: start: 20090825
  2. CHOLECALCIFEROL [Concomitant]
     Route: 065
  3. LISINOPRIL [Concomitant]
     Route: 048
  4. OMEPRAZOLE [Concomitant]
     Route: 065
  5. QUININE SULFATE [Concomitant]
     Route: 065
  6. SULFASALAZINE [Concomitant]
     Route: 065
  7. TOLTERODINE [Concomitant]
     Route: 065

REACTIONS (1)
  - ANKLE FRACTURE [None]
